FAERS Safety Report 9369465 (Version 1)
Quarter: 2013Q2

REPORT INFORMATION
  Report Type: Spontaneous
  Country: US (occurrence: US)
  Receive Date: 20130626
  Receipt Date: 20130626
  Transmission Date: 20140414
  Serious: No
  Sender: FDA-Public Use
  Company Number: US-PFIZER INC-2013185471

PATIENT
  Age: 55 Year
  Sex: Male

DRUGS (1)
  1. XALKORI [Suspect]
     Dosage: 250 MG, 2X/DAY (AKE 1 CAPSULE TWICE A DAY BY MOUTH)
     Route: 048
     Dates: start: 20120724

REACTIONS (1)
  - Dyspepsia [Unknown]
